FAERS Safety Report 20919128 (Version 1)
Quarter: 2022Q2

REPORT INFORMATION
  Report Type: Spontaneous
  Country: JP (occurrence: JP)
  Receive Date: 20220606
  Receipt Date: 20220606
  Transmission Date: 20220720
  Serious: Yes (Other)
  Sender: FDA-Public Use
  Company Number: JP-PFIZER INC-202200752168

PATIENT
  Age: 67 Year
  Sex: Female

DRUGS (4)
  1. PREGABALIN [Suspect]
     Active Substance: PREGABALIN
     Indication: Immunodeficiency
     Dosage: UNK
  2. PREGABALIN [Suspect]
     Active Substance: PREGABALIN
     Indication: Lymphoproliferative disorder
  3. SULFASALAZINE [Suspect]
     Active Substance: SULFASALAZINE
     Indication: Immunodeficiency
     Dosage: UNK
  4. SULFASALAZINE [Suspect]
     Active Substance: SULFASALAZINE
     Indication: Lymphoproliferative disorder

REACTIONS (6)
  - Oral disorder [Recovered/Resolved]
  - Rash [Recovered/Resolved]
  - Conjunctival hyperaemia [Recovering/Resolving]
  - Drug eruption [Recovering/Resolving]
  - Rash macular [Recovering/Resolving]
  - Pemphigus [Recovering/Resolving]
